FAERS Safety Report 16347364 (Version 7)
Quarter: 2024Q1

REPORT INFORMATION
  Report Type: Spontaneous
  Country: US (occurrence: US)
  Receive Date: 20190523
  Receipt Date: 20240220
  Transmission Date: 20240409
  Serious: No
  Sender: FDA-Public Use
  Company Number: US-PFIZER INC-2019213238

PATIENT
  Age: 67 Year
  Sex: Female

DRUGS (2)
  1. BOSULIF [Suspect]
     Active Substance: BOSUTINIB MONOHYDRATE
     Indication: Chronic myeloid leukaemia (in remission)
     Dosage: 500 MG, DAILY AT NIGHT WITH DINNER
     Route: 048
  2. BOSULIF [Suspect]
     Active Substance: BOSUTINIB MONOHYDRATE
     Dosage: 400 MG (4 TABS), DAILY (WITH FOOD)
     Route: 048

REACTIONS (4)
  - Skin discolouration [Unknown]
  - Skin depigmentation [Unknown]
  - Diarrhoea [Unknown]
  - Alopecia [Unknown]
